FAERS Safety Report 5803097-7 (Version None)
Quarter: 2008Q3

REPORT INFORMATION
  Report Type: 
  Country: None (occurrence: None)
  Receive Date: 20080708
  Receipt Date: 20080701
  Transmission Date: 20090109
  Serious: Yes (Hospitalization)
  Sender: FDA-Public Use
  Company Number: US-BAYER-200812674BCC

PATIENT
  Age: 63 Year
  Sex: Male
  Weight: 136 kg

DRUGS (5)
  1. ALEVE [Suspect]
     Indication: ARTHRALGIA
     Route: 048
  2. WARFARIN SODIUM [Concomitant]
  3. PAXIL [Concomitant]
  4. BLOOD PRESSURE MEDICATION [Concomitant]
  5. DIURETIC [Concomitant]

REACTIONS (2)
  - CARDIAC FAILURE CONGESTIVE [None]
  - FLUID RETENTION [None]
